FAERS Safety Report 5972630-7 (Version None)
Quarter: 2008Q4

REPORT INFORMATION
  Report Type: 
  Country: None (occurrence: None)
  Receive Date: 20081201
  Receipt Date: 20081128
  Transmission Date: 20090506
  Serious: Yes (Congenital Anomaly)
  Sender: FDA-Public Use
  Company Number: GB-JNJFOC-20081106486

PATIENT

DRUGS (3)
  1. RISPERIDONE [Suspect]
     Indication: DRUG EXPOSURE DURING PREGNANCY
  2. LORAZEPAM [Concomitant]
  3. SERTRALINE [Concomitant]

REACTIONS (1)
  - ABDOMINAL WALL ANOMALY [None]
